FAERS Safety Report 4937139-8 (Version None)
Quarter: 2006Q1

REPORT INFORMATION
  Report Type: 
  Country: None (occurrence: None)
  Receive Date: 20060302
  Receipt Date: 20060221
  Transmission Date: 20060701
  Serious: Yes (Disabling)
  Sender: FDA-Public Use
  Company Number: 222357

PATIENT
  Age: 71 Year
  Sex: Female
  Weight: 53 kg

DRUGS (12)
  1. RITUXAN [Suspect]
     Indication: NON-HODGKIN'S LYMPHOMA
     Dosage: 500 MG, INTRAVENOUS
     Route: 042
     Dates: start: 20040810, end: 20050120
  2. DOXORUBICIN HCL [Suspect]
     Indication: NON-HODGKIN'S LYMPHOMA
     Dosage: SEE IMAGE
     Route: 042
     Dates: start: 20040811, end: 20050124
  3. CYCLOPHOSPHAMIDE [Suspect]
     Indication: NON-HODGKIN'S LYMPHOMA
     Dosage: SEE IMAGE
     Dates: start: 20040811, end: 20050124
  4. ONCOVIN [Suspect]
     Indication: NON-HODGKIN'S LYMPHOMA
     Dosage: SEE IMAGE
     Route: 042
     Dates: start: 20040811, end: 20050124
  5. PREDONINE (PREDNISOLONE, PREDNISOLONE ACETATE, PREDNISOLONE SODIUM SUC [Suspect]
     Indication: NON-HODGKIN'S LYMPHOMA
     Dosage: SEE IMAGE
     Dates: start: 20040811, end: 20050127
  6. BRUFEN (IBUPROFEN) [Concomitant]
  7. POLARAMINE [Concomitant]
  8. SEROTONE (AZASETRON HYDROCHLORIDE) [Concomitant]
  9. PURSENNID (SENNOSIDES) [Concomitant]
  10. NAVOBAN (TROPISETRON HYDROCHLORIDE) [Concomitant]
  11. TIZANIDINE HCL [Concomitant]
  12. ALLOPURINOL [Concomitant]

REACTIONS (3)
  - NEUTROPENIA [None]
  - STOMATITIS [None]
  - WHITE BLOOD CELL COUNT DECREASED [None]
